FAERS Safety Report 19293849 (Version 1)
Quarter: 2021Q2

REPORT INFORMATION
  Report Type: Spontaneous
  Country: US (occurrence: US)
  Receive Date: 20210524
  Receipt Date: 20210524
  Transmission Date: 20210717
  Serious: No
  Sender: FDA-Public Use
  Company Number: None

PATIENT
  Age: 72 Year
  Sex: Male

DRUGS (1)
  1. IBUPROFEN (IBUPROFEN 200MG TAB) [Suspect]
     Active Substance: IBUPROFEN
     Indication: PAIN
     Route: 048
     Dates: start: 20210501, end: 20210518

REACTIONS (4)
  - Acute kidney injury [None]
  - Haematemesis [None]
  - Gastric haemorrhage [None]
  - Leukocytosis [None]

NARRATIVE: CASE EVENT DATE: 20210518
